FAERS Safety Report 24080744 (Version 1)
Quarter: 2024Q3

REPORT INFORMATION
  Report Type: Spontaneous
  Country: US (occurrence: US)
  Receive Date: 20240711
  Receipt Date: 20240711
  Transmission Date: 20241016
  Serious: No
  Sender: SUNOVION
  Company Number: US-SMPA-2024SPA000059

PATIENT

DRUGS (5)
  1. LATUDA [Suspect]
     Active Substance: LURASIDONE HYDROCHLORIDE
     Indication: Major depression
     Dosage: 20 MG
     Route: 048
     Dates: start: 202306
  2. MEMANTINE [Concomitant]
     Active Substance: MEMANTINE
     Indication: Affective disorder
     Dosage: 10 MG, BID
     Route: 065
  3. HYDROXYZINE [Concomitant]
     Active Substance: HYDROXYZINE HYDROCHLORIDE
     Indication: Anxiety
     Dosage: 25 MG, AS NECESSARY
     Route: 065
  4. ARMODAFINIL [Concomitant]
     Active Substance: ARMODAFINIL
     Indication: Somnolence
     Dosage: 200 MG, QD
     Route: 065
  5. QUVIVIQ [Concomitant]
     Active Substance: DARIDOREXANT
     Indication: Insomnia
     Dosage: 50 MG, HS
     Route: 065

REACTIONS (3)
  - Drug ineffective for unapproved indication [Unknown]
  - Therapeutic response unexpected [Unknown]
  - Off label use [Unknown]
